FAERS Safety Report 10284981 (Version 1)
Quarter: 2014Q3

REPORT INFORMATION
  Report Type: Spontaneous
  Country: GB (occurrence: GB)
  Receive Date: 20140708
  Receipt Date: 20140708
  Transmission Date: 20150326
  Serious: Yes (Hospitalization)
  Sender: FDA-Public Use
  Company Number: GB-GLAXOSMITHKLINE-B1010955A

PATIENT
  Age: 7 Year
  Sex: Male
  Weight: 24.7 kg

DRUGS (3)
  1. PENICILLIN V [Concomitant]
     Active Substance: PENICILLIN V
  2. PARACETAMOL [Concomitant]
     Active Substance: ACETAMINOPHEN
  3. ACICLOVIR [Suspect]
     Active Substance: ACYCLOVIR
     Indication: HERPES ZOSTER
     Dosage: 1380MG PER DAY
     Route: 042
     Dates: start: 20140619, end: 20140623

REACTIONS (1)
  - Renal failure acute [Recovering/Resolving]

NARRATIVE: CASE EVENT DATE: 20140623
